FAERS Safety Report 4496774-4 (Version None)
Quarter: 2004Q4

REPORT INFORMATION
  Report Type: 
  Country: None (occurrence: None)
  Receive Date: 20041109
  Receipt Date: 20041103
  Transmission Date: 20050328
  Serious: Yes (Hospitalization)
  Sender: FDA-Public Use
  Company Number: US-MERCK-0411USA00616

PATIENT
  Age: 28 Year
  Sex: Female

DRUGS (2)
  1. VIOXX [Suspect]
     Indication: PAIN MANAGEMENT
     Route: 048
     Dates: start: 20040401, end: 20040518
  2. VIOXX [Suspect]
     Route: 048
     Dates: start: 20040812

REACTIONS (1)
  - HEART RATE IRREGULAR [None]
